FAERS Safety Report 8420905-4 (Version None)
Quarter: 2012Q2

REPORT INFORMATION
  Report Type: 
  Country: None (occurrence: None)
  Receive Date: 20120608
  Receipt Date: 20120604
  Transmission Date: 20120825
  Serious: Yes (Hospitalization, Disabling, Other)
  Sender: FDA-Public Use
  Company Number: US-PFIZER INC-2011041765

PATIENT
  Sex: Female

DRUGS (19)
  1. NUVARING [Concomitant]
     Indication: CONTRACEPTION
     Dosage: UNK
     Dates: start: 20060101, end: 20090101
  2. MONTELUKAST SODIUM [Concomitant]
     Indication: DYSPNOEA
     Dosage: UNK
     Dates: start: 20040101, end: 20090101
  3. HYDROMORPHONE [Concomitant]
     Indication: PAIN
     Dosage: UNK
     Dates: start: 20050101, end: 20100101
  4. ZYRTEC [Concomitant]
     Indication: URTICARIA
     Dosage: UNK
     Dates: start: 20040101, end: 20090101
  5. BACTRIM [Concomitant]
     Indication: ANTIBIOTIC THERAPY
     Dosage: UNK
     Dates: start: 20060101, end: 20100101
  6. CHANTIX [Suspect]
     Indication: SMOKING CESSATION THERAPY
     Dosage: STARTING AND 1 MG CONTINUING MONTH PACK
     Dates: start: 20080317, end: 20080401
  7. BENADRYL [Concomitant]
     Indication: INSOMNIA
  8. BENADRYL [Concomitant]
     Indication: URTICARIA
  9. FLUCONAZOLE [Concomitant]
     Indication: ANTIFUNGAL TREATMENT
     Dosage: UNK
     Dates: start: 20060101, end: 20090101
  10. IBUPROFEN [Concomitant]
     Indication: PAIN
     Dosage: UNK
  11. OXYCODONE AND ACETAMINOPHEN [Concomitant]
     Indication: PAIN
     Dosage: UNK
     Dates: start: 20030101, end: 20090101
  12. CEPHALEXIN [Concomitant]
     Indication: ANTIBIOTIC THERAPY
     Dosage: UNK
     Dates: start: 20060101, end: 20090101
  13. ZANTAC [Concomitant]
     Indication: GASTRIC DISORDER
     Dosage: UNK
     Dates: start: 20040101, end: 20090101
  14. PLAN B [Concomitant]
     Indication: CONTRACEPTION
     Dosage: UNK
     Dates: start: 20030101, end: 20090101
  15. BENADRYL [Concomitant]
     Indication: HYPERSENSITIVITY
     Dosage: UNK
     Dates: start: 20040101
  16. ZYRTEC [Concomitant]
     Indication: HYPERSENSITIVITY
  17. NAPROXEN [Concomitant]
     Indication: PAIN
     Dosage: UNK
     Dates: start: 20050101, end: 20100101
  18. ZANTAC [Concomitant]
     Indication: URTICARIA
  19. MONTELUKAST SODIUM [Concomitant]
     Indication: URTICARIA

REACTIONS (16)
  - HOMICIDAL IDEATION [None]
  - HOSTILITY [None]
  - IRRITABILITY [None]
  - BIPOLAR DISORDER [None]
  - BORDERLINE PERSONALITY DISORDER [None]
  - AGGRESSION [None]
  - SUICIDE ATTEMPT [None]
  - AMNESIA [None]
  - AGITATION [None]
  - DEPRESSION [None]
  - POST-TRAUMATIC STRESS DISORDER [None]
  - HALLUCINATION, AUDITORY [None]
  - PHYSICAL ASSAULT [None]
  - INSOMNIA [None]
  - ANXIETY [None]
  - ANGER [None]
